FAERS Safety Report 10265700 (Version 1)
Quarter: 2014Q2

REPORT INFORMATION
  Report Type: Report from Study
  Country: DE (occurrence: DE)
  Receive Date: 20140627
  Receipt Date: 20140627
  Transmission Date: 20141212
  Serious: Yes (Hospitalization)
  Sender: FDA-Public Use
  Company Number: DE-BIOGENIDEC-2014BI059568

PATIENT
  Age: 55 Year
  Sex: Female
  Weight: 92 kg

DRUGS (7)
  1. TECFIDERA [Suspect]
     Indication: MULTIPLE SCLEROSIS
     Route: 048
     Dates: start: 20140318
  2. BISOPROLOL [Concomitant]
     Indication: HYPERTENSION
  3. AMLODIPINE [Concomitant]
     Indication: HYPERTENSION
  4. RAMIPRIL [Concomitant]
     Indication: CARDIAC FAILURE
  5. LEVETIRACETAM [Concomitant]
     Indication: EPILEPSY
  6. PRAMIPEXOLE [Concomitant]
     Indication: PARKINSON^S DISEASE
  7. TOVIAZ [Concomitant]
     Indication: URINARY INCONTINENCE

REACTIONS (1)
  - Nerve root compression [Recovered/Resolved]
